FAERS Safety Report 5069355-1 (Version None)
Quarter: 2006Q3

REPORT INFORMATION
  Report Type: 
  Country: None (occurrence: None)
  Receive Date: 20060731
  Receipt Date: 20060717
  Transmission Date: 20061208
  Serious: Yes (Hospitalization, Other)
  Sender: FDA-Public Use
  Company Number: 2006090641

PATIENT
  Age: 67 Year
  Sex: Male
  Weight: 122.9248 kg

DRUGS (1)
  1. CELEBREX [Suspect]
     Indication: ARTHRITIS
     Dosage: 100 MG (100 MG, 1 IN 1 D)

REACTIONS (6)
  - CIRCULATORY COLLAPSE [None]
  - CONSTIPATION [None]
  - DIARRHOEA [None]
  - HERPES ZOSTER [None]
  - MYOCARDIAL INFARCTION [None]
  - NERVE INJURY [None]
